FAERS Safety Report 11138284 (Version 1)
Quarter: 2015Q2

REPORT INFORMATION
  Report Type: Spontaneous
  Country: US (occurrence: US)
  Receive Date: 20150526
  Receipt Date: 20150526
  Transmission Date: 20150821
  Serious: Yes (Hospitalization, Other)
  Sender: FDA-Public Use
  Company Number: US-ELI_LILLY_AND_COMPANY-US201505009164

PATIENT
  Age: 18 Year
  Sex: Female

DRUGS (2)
  1. PROZAC [Suspect]
     Active Substance: FLUOXETINE HYDROCHLORIDE
     Dosage: 10 MG, QD
     Route: 065
  2. PROZAC [Suspect]
     Active Substance: FLUOXETINE HYDROCHLORIDE
     Indication: DEPRESSION
     Dosage: 20 MG, QD
     Route: 065
     Dates: start: 1998

REACTIONS (8)
  - Premature labour [Recovered/Resolved]
  - Amniotic cavity infection [Unknown]
  - Perineal injury [Unknown]
  - Abortion threatened [Unknown]
  - Maternal exposure timing unspecified [Recovered/Resolved]
  - Prolonged rupture of membranes [Recovered/Resolved]
  - Premature rupture of membranes [Recovered/Resolved]
  - Amniotic fluid volume decreased [Recovered/Resolved]

NARRATIVE: CASE EVENT DATE: 20000828
